FAERS Safety Report 9335633 (Version 3)
Quarter: 2013Q3

REPORT INFORMATION
  Report Type: Spontaneous
  Country: AT (occurrence: AT)
  Receive Date: 20130607
  Receipt Date: 20130827
  Transmission Date: 20140515
  Serious: Yes (Hospitalization)
  Sender: FDA-Public Use
  Company Number: AT-ROCHE-1231123

PATIENT
  Age: 52 Year
  Sex: Female

DRUGS (13)
  1. HERCEPTIN [Suspect]
     Indication: PRODUCT USED FOR UNKNOWN INDICATION
     Route: 065
     Dates: start: 200301, end: 200401
  2. HERCEPTIN [Suspect]
     Dosage: 1ST LINE THERAPY - MONOTHERAPY
     Route: 065
     Dates: start: 200411, end: 200608
  3. HERCEPTIN [Suspect]
     Dosage: 2ND LINE THERAPY
     Route: 065
     Dates: start: 200710, end: 200712
  4. HERCEPTIN [Suspect]
     Dosage: HERCEPTIN MAINTENANCE
     Route: 065
     Dates: start: 200801, end: 201004
  5. HERCEPTIN [Suspect]
     Dosage: HERCEPTIN MAINTENANCE WITH EXEMESTAN TREATMENT
     Route: 065
     Dates: start: 201005, end: 201104
  6. HERCEPTIN [Suspect]
     Dosage: THIRD LINE THERAPY
     Route: 065
     Dates: start: 201108, end: 201203
  7. HERCEPTIN [Suspect]
     Dosage: 4TH LINE THERAPY
     Route: 065
     Dates: start: 201204, end: 201210
  8. HERCEPTIN [Suspect]
     Dosage: HERCEPTIN MAINTENANCE
     Route: 065
     Dates: start: 201210
  9. NAVELBINE [Suspect]
     Indication: PRODUCT USED FOR UNKNOWN INDICATION
     Route: 065
     Dates: start: 200301, end: 200401
  10. LAPATINIB [Suspect]
     Indication: PRODUCT USED FOR UNKNOWN INDICATION
     Route: 065
     Dates: start: 201108, end: 201203
  11. XELODA [Suspect]
     Indication: PRODUCT USED FOR UNKNOWN INDICATION
     Route: 065
     Dates: start: 200710, end: 200712
  12. EXEMESTANE [Suspect]
     Indication: PRODUCT USED FOR UNKNOWN INDICATION
     Route: 065
     Dates: start: 201005, end: 201104
  13. ABRAXANE [Concomitant]

REACTIONS (10)
  - Cholecystectomy [Unknown]
  - Malignant neoplasm progression [Unknown]
  - Liver function test abnormal [Unknown]
  - Metastases to skin [Unknown]
  - Metastases to liver [Unknown]
  - Metastases to lymph nodes [Unknown]
  - Metastases to lymph nodes [Unknown]
  - Hydrocholecystis [Unknown]
  - Metastases to liver [Unknown]
  - Metastases to liver [Unknown]
